FAERS Safety Report 21734994 (Version 1)
Quarter: 2022Q4

REPORT INFORMATION
  Report Type: Spontaneous
  Country: US (occurrence: None)
  Receive Date: 20221212
  Receipt Date: 20221212
  Transmission Date: 20230112
  Serious: Yes (Death, Life-Threatening, Hospitalization)
  Sender: FDA-Public Use
  Company Number: None

PATIENT
  Age: 23 Year
  Sex: Female
  Weight: 63.60 kg

DRUGS (23)
  1. UNITUXIN [Suspect]
     Active Substance: DINUTUXIMAB
     Indication: Neuroblastoma
     Dosage: OTHER QUANTITY : 29.23 UNIT MG;?FREQUENCY : DAILY;?
     Route: 042
     Dates: start: 20221107, end: 20221109
  2. GRANULOCYTE-MACROPHAGE COLONY-STIMULATING FACTOR [Suspect]
     Active Substance: GRANULOCYTE-MACROPHAGE COLONY-STIMULATING FACTOR
     Indication: Neuroblastoma
     Dosage: FREQUENCY : DAILY;?
     Route: 058
     Dates: start: 20221109, end: 20221114
  3. ACETAMINOPHEN [Concomitant]
     Active Substance: ACETAMINOPHEN
  4. ALBUMIN, HUMAN 25% [Concomitant]
  5. AZITHROMYCIN [Concomitant]
     Active Substance: AZITHROMYCIN
  6. CEFEPIME [Concomitant]
     Active Substance: CEFEPIME HYDROCHLORIDE
  7. CETIRIZINE [Concomitant]
     Active Substance: CETIRIZINE HYDROCHLORIDE
  8. DIPHENHYDRAMINE [Concomitant]
     Active Substance: DIPHENHYDRAMINE
  9. DRONABINOL [Concomitant]
     Active Substance: DRONABINOL
  10. FAMOTIDINE [Concomitant]
     Active Substance: FAMOTIDINE
  11. FUROSEMIDE [Concomitant]
     Active Substance: FUROSEMIDE
  12. GABAPENTIN [Concomitant]
     Active Substance: GABAPENTIN
  13. HYDROXYZINE [Concomitant]
     Active Substance: HYDROXYZINE HYDROCHLORIDE
  14. LORAZEPAM [Concomitant]
     Active Substance: LORAZEPAM
  15. MORPHINE [Concomitant]
     Active Substance: MORPHINE
  16. MORPHINE [Concomitant]
     Active Substance: MORPHINE
  17. NALBUPHINE [Concomitant]
     Active Substance: NALBUPHINE
  18. PALONOSETRON [Concomitant]
     Active Substance: PALONOSETRON
  19. SCOPLAMINE [Concomitant]
  20. SULFAMETHOXAZOLE 400MG/TRIMETHOPRIM 80MG [Concomitant]
  21. VORINOSTAT [Concomitant]
     Active Substance: VORINOSTAT
  22. 131-MIBG [Concomitant]
  23. POTASSIUM IODIDE [Concomitant]
     Active Substance: POTASSIUM IODIDE

REACTIONS (13)
  - Neuroblastoma recurrent [None]
  - Haemoglobin decreased [None]
  - Capillary leak syndrome [None]
  - Hypoxia [None]
  - Blood albumin decreased [None]
  - Cough [None]
  - Dyspnoea [None]
  - Hypervolaemia [None]
  - Pulmonary oedema [None]
  - Pneumocystis test positive [None]
  - Fungal infection [None]
  - Acute respiratory distress syndrome [None]
  - Cerebrovascular accident [None]

NARRATIVE: CASE EVENT DATE: 20221110
